FAERS Safety Report 16893535 (Version 1)
Quarter: 2019Q4

REPORT INFORMATION
  Report Type: Report from Study
  Country: None (occurrence: RO)
  Receive Date: 20191008
  Receipt Date: 20191008
  Transmission Date: 20200122
  Serious: Yes (Hospitalization, Other)
  Sender: FDA-Public Use
  Company Number: RO-ABBVIE-19K-135-2877619-00

PATIENT
  Age: 74 Year
  Sex: Female

DRUGS (5)
  1. DUODOPA [Suspect]
     Active Substance: CARBIDOPA\LEVODOPA
     Indication: PARKINSON^S DISEASE
     Dosage: DM=4.00 DC=5.40 ED=2.40 NRED=4; DMN=3.50 DCN=2.90 EDN=2.90 NREDN=2
     Route: 050
     Dates: start: 20170802, end: 20190830
  2. QUETIAPINE. [Concomitant]
     Active Substance: QUETIAPINE
     Indication: DEMENTIA
     Route: 048
     Dates: start: 20190529
  3. DUODOPA [Suspect]
     Active Substance: CARBIDOPA\LEVODOPA
     Route: 050
     Dates: start: 20190911
  4. COAXIL [Concomitant]
     Active Substance: TIANEPTINE SODIUM
     Indication: DEMENTIA
     Route: 048
     Dates: start: 20190529
  5. MEMANTINE. [Concomitant]
     Active Substance: MEMANTINE
     Indication: DEMENTIA
     Route: 048

REACTIONS (6)
  - Hallucination [Recovering/Resolving]
  - Hallucination [Recovered/Resolved]
  - Psychotic disorder [Unknown]
  - Psychomotor hyperactivity [Recovering/Resolving]
  - Aggression [Recovering/Resolving]
  - Hallucination [Recovered/Resolved]

NARRATIVE: CASE EVENT DATE: 20190803
